FAERS Safety Report 14609815 (Version 1)
Quarter: 2018Q1

REPORT INFORMATION
  Report Type: Spontaneous
  Country: DE (occurrence: DE)
  Receive Date: 20180307
  Receipt Date: 20180307
  Transmission Date: 20180509
  Serious: Yes (Life-Threatening, Hospitalization, Disabling)
  Sender: FDA-Public Use
  Company Number: DE-TEVA-2018-DE-862783

PATIENT
  Age: 68 Year
  Sex: Male
  Weight: 105 kg

DRUGS (4)
  1. TRIMIPRAMINE [Suspect]
     Active Substance: TRIMIPRAMINE
     Indication: PANIC ATTACK
     Dosage: UNK UKN, UNK
     Route: 048
     Dates: start: 201610
  2. BISOPROLOL 1A PHARMA [Suspect]
     Active Substance: BISOPROLOL
     Indication: HYPERTENSION
     Route: 048
     Dates: end: 20160930
  3. VOTUM [Concomitant]
     Active Substance: OLMESARTAN MEDOXOMIL
     Indication: HYPERTENSION
     Dosage: LONG-TERM TREATMENT
     Route: 065
  4. BISOPROLOL 1A PHARMA [Suspect]
     Active Substance: BISOPROLOL
     Indication: EXTRASYSTOLES
     Route: 065

REACTIONS (3)
  - Restlessness [Recovered/Resolved]
  - Panic attack [Unknown]
  - Arrhythmia [Recovered/Resolved]

NARRATIVE: CASE EVENT DATE: 20161223
